FAERS Safety Report 9790541 (Version 1)
Quarter: 2013Q4

REPORT INFORMATION
  Report Type: Spontaneous
  Country: FR (occurrence: FR)
  Receive Date: 20131231
  Receipt Date: 20131231
  Transmission Date: 20140711
  Serious: Yes (Death, Hospitalization)
  Sender: FDA-Public Use
  Company Number: FR-PFIZER INC-2013369804

PATIENT
  Age: 86 Year
  Sex: Male

DRUGS (12)
  1. INSPRA [Suspect]
     Dosage: 25 MG, DAILY
     Route: 048
     Dates: end: 20131114
  2. XARELTO [Suspect]
     Dosage: 15 MG, DAILY
     Route: 048
     Dates: start: 20130823, end: 20131005
  3. ZYLORIC [Suspect]
     Dosage: 300 MG, DAILY
     Route: 048
     Dates: end: 20131114
  4. INEXIUM /01479302/ [Suspect]
     Dosage: 20 MG, DAILY
     Dates: end: 20131114
  5. SINGULAIR [Suspect]
     Dosage: 10 MG, DAILY
     Route: 048
     Dates: end: 20131114
  6. LASILIX [Suspect]
     Dosage: 125 MG, DAILY
     Route: 048
     Dates: end: 20131114
  7. JOSIR [Suspect]
     Dosage: UNK
     Route: 048
     Dates: end: 20131114
  8. PROZAC [Concomitant]
     Dosage: 20 MG, DAILY
     Route: 048
  9. KARDEGIC [Concomitant]
     Dosage: 75 MG, DAILY
     Route: 048
  10. PLAVIX [Concomitant]
  11. XANAX [Concomitant]
     Dosage: 0.25 MG, DAILY
  12. LEVOTHYROX [Concomitant]

REACTIONS (6)
  - Bronchitis [Fatal]
  - Drug reaction with eosinophilia and systemic symptoms [Recovering/Resolving]
  - Rash [Recovering/Resolving]
  - Eosinophilia [Recovered/Resolved]
  - Cholestasis [Unknown]
  - Rash erythematous [Unknown]
